FAERS Safety Report 11002679 (Version 4)
Quarter: 2015Q2

REPORT INFORMATION
  Report Type: Spontaneous
  Country: US (occurrence: US)
  Receive Date: 20150408
  Receipt Date: 20150617
  Transmission Date: 20150821
  Serious: Yes (Other)
  Sender: FDA-Public Use
  Company Number: US-UNITED THERAPEUTICS-UNT-2015-003708

PATIENT
  Age: 68 Year
  Sex: Female
  Weight: 64.85 kg

DRUGS (7)
  1. REMODULIN [Suspect]
     Active Substance: TREPROSTINIL
     Dosage: 0.120 ?G/KG, CONTINUING
     Route: 058
     Dates: start: 20090903
  2. ADEMPAS [Suspect]
     Active Substance: RIOCIGUAT
     Indication: PRODUCT USED FOR UNKNOWN INDICATION
     Dosage: UNK
     Dates: start: 20150324, end: 20150327
  3. ADEMPAS [Suspect]
     Active Substance: RIOCIGUAT
     Dosage: UNK
     Dates: start: 20150329
  4. REMODULIN [Suspect]
     Active Substance: TREPROSTINIL
     Indication: PULMONARY HYPERTENSION
     Dosage: 0.120 ?G/KG, CONTINUING
     Route: 058
     Dates: start: 20071226
  5. OPSUMIT [Concomitant]
     Active Substance: MACITENTAN
     Indication: PRODUCT USED FOR UNKNOWN INDICATION
  6. COUMADIN [Concomitant]
     Active Substance: WARFARIN SODIUM
     Indication: PRODUCT USED FOR UNKNOWN INDICATION
  7. REMODULIN [Suspect]
     Active Substance: TREPROSTINIL
     Dosage: 0.120 ?G/KG, CONTINUING
     Route: 058

REACTIONS (10)
  - Infusion site pain [Unknown]
  - Infusion site infection [Recovered/Resolved]
  - Diarrhoea [Unknown]
  - Haemoptysis [Unknown]
  - Nausea [Unknown]
  - Infusion site erythema [Unknown]
  - Infusion site discolouration [Unknown]
  - Infusion site oedema [Unknown]
  - Abdominal pain upper [Unknown]
  - Tendonitis [Unknown]

NARRATIVE: CASE EVENT DATE: 201502
